FAERS Safety Report 19086855 (Version 1)
Quarter: 2021Q2

REPORT INFORMATION
  Report Type: Spontaneous
  Country: CA (occurrence: CA)
  Receive Date: 20210401
  Receipt Date: 20210401
  Transmission Date: 20210717
  Serious: No
  Sender: FDA-Public Use
  Company Number: None

PATIENT
  Age: 37 Year
  Sex: Female
  Weight: 67.13 kg

DRUGS (7)
  1. ZINC. [Concomitant]
     Active Substance: ZINC
  2. IRON SUPPLEMENTS [Concomitant]
     Active Substance: IRON
  3. MIRENA [Suspect]
     Active Substance: LEVONORGESTREL
     Dates: start: 20161116, end: 20210308
  4. VITAMIN D [Concomitant]
     Active Substance: VITAMIN D NOS
  5. KELP [Concomitant]
     Active Substance: KELP
  6. Q10 [Concomitant]
     Active Substance: DIETARY SUPPLEMENT\UBIDECARENONE
  7. MAGNESIUM [Concomitant]
     Active Substance: MAGNESIUM

REACTIONS (14)
  - Crying [None]
  - Mood swings [None]
  - Acne [None]
  - Vulvovaginal dryness [None]
  - Fatigue [None]
  - Somnolence [None]
  - Myalgia [None]
  - Coccydynia [None]
  - Impaired work ability [None]
  - Self-injurious ideation [None]
  - Back pain [None]
  - Loss of personal independence in daily activities [None]
  - Feeling abnormal [None]
  - Complication associated with device [None]

NARRATIVE: CASE EVENT DATE: 20210315
